FAERS Safety Report 19009453 (Version 1)
Quarter: 2021Q1

REPORT INFORMATION
  Report Type: Spontaneous
  Country: FR (occurrence: FR)
  Receive Date: 20210315
  Receipt Date: 20210315
  Transmission Date: 20210420
  Serious: Yes (Death, Life-Threatening, Hospitalization)
  Sender: FDA-Public Use
  Company Number: FR-PFIZER INC-2021174020

PATIENT

DRUGS (17)
  1. AMIKACIN. [Suspect]
     Active Substance: AMIKACIN
     Dosage: UNK
  2. CEFIXIME. [Concomitant]
     Active Substance: CEFIXIME
     Dosage: UNK
  3. OFLOXACIN. [Concomitant]
     Active Substance: OFLOXACIN
     Dosage: UNK
  4. VANCOMYCIN HCL [Suspect]
     Active Substance: VANCOMYCIN HYDROCHLORIDE
     Dosage: UNK
  5. HEPARIN SODIUM. [Suspect]
     Active Substance: HEPARIN SODIUM
     Dosage: UNK
  6. PIPERACILLIN/TAZOBACTAM [Suspect]
     Active Substance: PIPERACILLIN SODIUM\TAZOBACTAM SODIUM
     Dosage: UNK
  7. VALACICLOVIR HYDROCHLORIDE [Suspect]
     Active Substance: VALACYCLOVIR HYDROCHLORIDE
     Dosage: UNK
  8. CEFEPIME HCL [Suspect]
     Active Substance: CEFEPIME HYDROCHLORIDE
     Dosage: UNK
  9. NOXAFIL [Suspect]
     Active Substance: POSACONAZOLE
     Dosage: UNK
  10. ESOMEPRAZOLE. [Suspect]
     Active Substance: ESOMEPRAZOLE MAGNESIUM
     Dosage: UNK
  11. FLAGYL [Concomitant]
     Active Substance: METRONIDAZOLE\METRONIDAZOLE HYDROCHLORIDE
     Dosage: UNK
  12. ATGAM [Concomitant]
     Active Substance: EQUINE THYMOCYTE IMMUNE GLOBULIN
     Dosage: UNK
  13. CUBICIN [Suspect]
     Active Substance: DAPTOMYCIN
     Dosage: UNK
  14. CYCLOSPORINE. [Suspect]
     Active Substance: CYCLOSPORINE
     Dosage: UNK
  15. CILASTATIN SODIUM/IMIPENEM [Concomitant]
     Active Substance: CILASTATIN SODIUM\IMIPENEM
     Dosage: UNK
  16. MOTILIUM EXPRESS [Concomitant]
     Active Substance: DOMPERIDONE
     Dosage: UNK
  17. SOLU?MEDROL [Concomitant]
     Active Substance: METHYLPREDNISOLONE SODIUM SUCCINATE
     Dosage: UNK

REACTIONS (15)
  - Skin mass [Fatal]
  - Circulatory collapse [Fatal]
  - Inflammation [Fatal]
  - Generalised oedema [Fatal]
  - Confusional state [Fatal]
  - Septic shock [Fatal]
  - Myalgia [Fatal]
  - Bacteraemia [Fatal]
  - Therapy cessation [Fatal]
  - Hypoalbuminaemia [Fatal]
  - Diffuse cutaneous mastocytosis [Fatal]
  - Platelet count decreased [Fatal]
  - Pyrexia [Fatal]
  - Skin necrosis [Fatal]
  - C-reactive protein increased [Fatal]

NARRATIVE: CASE EVENT DATE: 20140104
